FAERS Safety Report 4546211-6 (Version None)
Quarter: 2005Q1

REPORT INFORMATION
  Report Type: 
  Country: None (occurrence: None)
  Receive Date: 20050103
  Receipt Date: 20041221
  Transmission Date: 20050727
  Serious: Yes (Other)
  Sender: FDA-Public Use
  Company Number: 2004240089NL

PATIENT
  Sex: Male

DRUGS (1)
  1. PEGVISOMANT (PEGVISOMANT) [Suspect]
     Indication: ILL-DEFINED DISORDER
     Dosage: SUBCUTANEOUS
     Route: 058

REACTIONS (1)
  - ATHEROSCLEROSIS [None]
